FAERS Safety Report 6017903-7 (Version None)
Quarter: 2008Q4

REPORT INFORMATION
  Report Type: 
  Country: None (occurrence: None)
  Receive Date: 20081223
  Receipt Date: 20081215
  Transmission Date: 20090506
  Serious: Yes (Other)
  Sender: FDA-Public Use
  Company Number: GB-NOVOPROD-273218

PATIENT
  Age: 14 Year
  Sex: Male
  Weight: 29.9 kg

DRUGS (5)
  1. NORDITROPIN [Suspect]
     Indication: BODY HEIGHT BELOW NORMAL
     Dosage: .8 MG, QD
     Route: 058
     Dates: start: 20080307, end: 20080307
  2. NORDITROPIN [Suspect]
     Dosage: .4 MG, QD
     Route: 058
     Dates: start: 20080423, end: 20080506
  3. NORDITROPIN [Suspect]
     Dosage: .6 MG, QD
     Route: 058
     Dates: start: 20080507, end: 20080520
  4. NORDITROPIN [Suspect]
     Dosage: .8 MG, QD
     Route: 058
     Dates: start: 20080521
  5. GONAPEPTYL                         /00975901/ [Concomitant]
     Dosage: 5 MG, QD
     Route: 030

REACTIONS (5)
  - BLOOD CREATINE PHOSPHOKINASE INCREASED [None]
  - GAIT DISTURBANCE [None]
  - HEADACHE [None]
  - PAIN IN EXTREMITY [None]
  - UPPER RESPIRATORY TRACT INFLAMMATION [None]
